FAERS Safety Report 24574326 (Version 1)
Quarter: 2024Q4

REPORT INFORMATION
  Report Type: Spontaneous
  Country: US (occurrence: US)
  Receive Date: 20241104
  Receipt Date: 20241104
  Transmission Date: 20250114
  Serious: No
  Sender: NOVARTIS
  Company Number: US-002147023-NVSC2024US210191

PATIENT
  Sex: Female

DRUGS (11)
  1. ENTRESTO [Suspect]
     Active Substance: SACUBITRIL\VALSARTAN
     Dosage: UNK
     Route: 065
  2. TIKOSYN [Suspect]
     Active Substance: DOFETILIDE
     Indication: Atrial fibrillation
     Dosage: 0.25 MG, BID, 0.25MG TWICE A DAY
     Route: 065
  3. CALCITRIOL [Concomitant]
     Active Substance: CALCITRIOL
     Indication: Blood calcium
     Dosage: UNK, 1MCG, 4 TIMES A DAY
  4. LEVOTHYROXINE [Concomitant]
     Active Substance: LEVOTHYROXINE
     Indication: Thyroid disorder
     Dosage: 125 MG, QD, 125MG ONCE DAILY
     Route: 065
     Dates: start: 1990
  5. FUROSEMIDE [Concomitant]
     Active Substance: FUROSEMIDE
     Dosage: 40 MG, 40MG EVERY OTHER DAY, INDICATION AS REPORTED  BY THE PRIMARY SOURCE TO KEEP WATER OFF HEART,
     Route: 065
  6. CALCIUM [Concomitant]
     Active Substance: CALCIUM
     Dosage: 500 MG, QD, 500MG ONCE DAILY
     Route: 065
  7. IRON [Concomitant]
     Active Substance: IRON
     Dosage: 325 MG, QW, 325MG WEEKLY
     Route: 065
  8. TRAMADOL [Concomitant]
     Active Substance: TRAMADOL
     Indication: Back pain
     Dosage: 50 MG, 50MG, MAY TAKE UP TO TWICE DAILY
     Route: 065
  9. ENTRESTO [Concomitant]
     Active Substance: SACUBITRIL\VALSARTAN
     Indication: Atrial fibrillation
     Dosage: UNK
     Route: 065
  10. MAGNESIUM OXIDE [Concomitant]
     Active Substance: MAGNESIUM OXIDE
     Dosage: 25 MG, QD, 25MG ONCE DAILY
     Route: 065
  11. HERBALS\TURMERIC [Concomitant]
     Active Substance: HERBALS\TURMERIC
     Indication: Arthritis
     Dosage: 400 MG, QD, ONCE DAILY, 400MG
     Route: 065

REACTIONS (1)
  - Heart rate increased [Unknown]
